FAERS Safety Report 25148050 (Version 2)
Quarter: 2025Q3

REPORT INFORMATION
  Report Type: Report from Study
  Country: US (occurrence: US)
  Receive Date: 20250402
  Receipt Date: 20250809
  Transmission Date: 20251020
  Serious: Yes (Other)
  Sender: ALEXION PHARMACEUTICALS
  Company Number: US-ASTRAZENECA-202405USA002418US

PATIENT
  Age: 72 Year
  Sex: Female
  Weight: 82.086 kg

DRUGS (4)
  1. TEZEPELUMAB [Suspect]
     Active Substance: TEZEPELUMAB
  2. TEZEPELUMAB [Suspect]
     Active Substance: TEZEPELUMAB
  3. FLUAD NOS [Concomitant]
     Active Substance: INFLUENZA VIRUS VACCINE
     Indication: Prophylaxis
  4. COVID-19 vaccine [Concomitant]
     Indication: Prophylaxis

REACTIONS (1)
  - Alopecia [Recovered/Resolved with Sequelae]

NARRATIVE: CASE EVENT DATE: 20240807
